FAERS Safety Report 4339361-0 (Version None)
Quarter: 2004Q2

REPORT INFORMATION
  Report Type: 
  Country: None (occurrence: None)
  Receive Date: 20040412
  Receipt Date: 20040331
  Transmission Date: 20050107
  Serious: Yes (Other)
  Sender: FDA-Public Use
  Company Number: 205625

PATIENT
  Age: 51 Year
  Sex: Male
  Weight: 74.8 kg

DRUGS (5)
  1. RITUXAN [Suspect]
     Indication: LYMPHOMA
     Dosage: INTRAVENOUS
     Route: 042
  2. CLOZAPINE [Suspect]
     Dosage: 250 MG, BID, ORAL
     Route: 048
     Dates: start: 19990401, end: 20040219
  3. FLUDARABINE PHOSPHATE [Suspect]
     Indication: LYMPHOMA
  4. ZYPREXA [Concomitant]
  5. DIVALPROEX (DIVALPROEX SODIUM) [Concomitant]

REACTIONS (2)
  - AGRANULOCYTOSIS [None]
  - WHITE BLOOD CELL COUNT DECREASED [None]
